FAERS Safety Report 8024358-X (Version None)
Quarter: 2012Q1

REPORT INFORMATION
  Report Type: 
  Country: None (occurrence: None)
  Receive Date: 20120103
  Receipt Date: 20111222
  Transmission Date: 20120608
  Serious: Yes (Hospitalization, Other)
  Sender: FDA-Public Use
  Company Number: 2011SP025635

PATIENT
  Age: 23 Year
  Sex: Female
  Weight: 113.3993 kg

DRUGS (1)
  1. NUVARING [Suspect]
     Indication: CONTRACEPTION
     Dates: start: 20070101, end: 20090529

REACTIONS (37)
  - PULMONARY EMBOLISM [None]
  - DEPRESSION [None]
  - ARTHRALGIA [None]
  - POLYCYSTIC OVARIES [None]
  - DRUG INEFFECTIVE [None]
  - PANIC ATTACK [None]
  - BENIGN INTRACRANIAL HYPERTENSION [None]
  - DILATATION VENTRICULAR [None]
  - OTITIS MEDIA [None]
  - DYSPNOEA [None]
  - OXYGEN SATURATION DECREASED [None]
  - IRRITABILITY [None]
  - ANXIETY [None]
  - BODY TEMPERATURE INCREASED [None]
  - RASH [None]
  - CHEST PAIN [None]
  - HAEMATOCHEZIA [None]
  - OEDEMA [None]
  - DEEP VEIN THROMBOSIS [None]
  - MUSCLE SPASMS [None]
  - TACHYCARDIA [None]
  - INTERNATIONAL NORMALISED RATIO DECREASED [None]
  - MEDICAL DEVICE COMPLICATION [None]
  - JOINT CREPITATION [None]
  - MIGRAINE [None]
  - HEADACHE [None]
  - JAUNDICE [None]
  - HYPERCOAGULATION [None]
  - PNEUMONIA [None]
  - PULMONARY HYPERTENSION [None]
  - CERVICAL DYSPLASIA [None]
  - PAIN IN EXTREMITY [None]
  - OEDEMA PERIPHERAL [None]
  - WHITE BLOOD CELL COUNT INCREASED [None]
  - ANGER [None]
  - DIARRHOEA [None]
  - CONSTIPATION [None]
